FAERS Safety Report 18118047 (Version 2)
Quarter: 2020Q3

REPORT INFORMATION
  Report Type: Spontaneous
  Country: DE (occurrence: DE)
  Receive Date: 20200806
  Receipt Date: 20200907
  Transmission Date: 20201103
  Serious: Yes (Other)
  Sender: FDA-Public Use
  Company Number: NVSC2020DE216612

PATIENT
  Age: 79 Year
  Sex: Female
  Weight: 95 kg

DRUGS (10)
  1. DIGIMERCK [Suspect]
     Active Substance: DIGITOXIN
     Dosage: 0.05 MG
     Route: 065
     Dates: start: 202005
  2. BISOPROLOL [Suspect]
     Active Substance: BISOPROLOL
     Indication: PRODUCT USED FOR UNKNOWN INDICATION
     Dosage: 1 DF, QD
     Route: 065
     Dates: start: 20200720
  3. ELIQUIS [Concomitant]
     Active Substance: APIXABAN
     Indication: PRODUCT USED FOR UNKNOWN INDICATION
     Dosage: 5 MG (0.5 DAY)
     Route: 065
  4. EZETIMIBE. [Concomitant]
     Active Substance: EZETIMIBE
     Indication: PRODUCT USED FOR UNKNOWN INDICATION
     Dosage: 10 MG, QD
     Route: 065
  5. DIGIMERCK [Suspect]
     Active Substance: DIGITOXIN
     Indication: ARRHYTHMIA
     Dosage: 3 DF, Q8H
     Route: 065
     Dates: start: 20200520
  6. TORASEMID [Concomitant]
     Active Substance: TORSEMIDE
     Indication: PRODUCT USED FOR UNKNOWN INDICATION
     Dosage: 5MG/10MG
     Route: 065
     Dates: start: 2014
  7. DIGIMERCK [Suspect]
     Active Substance: DIGITOXIN
     Dosage: 1 DF, QD
     Route: 065
     Dates: start: 20200523
  8. CANDECOR [Concomitant]
     Active Substance: CANDESARTAN CILEXETIL
     Indication: PRODUCT USED FOR UNKNOWN INDICATION
     Dosage: 4 MG (0.5 DAY)
     Route: 065
  9. BISOPROLOL [Suspect]
     Active Substance: BISOPROLOL
     Dosage: 2.5 MG (0.5 DAY)
     Route: 065
  10. DIGIMERCK [Suspect]
     Active Substance: DIGITOXIN
     Dosage: 0.5 MG, BID (0.05 MG IN THE MORNING AND 1/2 TABLET (= 0.025 MG) IN THE EVENING )
     Route: 065
     Dates: start: 20200626

REACTIONS (4)
  - Off label use [Unknown]
  - Headache [Unknown]
  - Arrhythmia [Unknown]
  - Drug level increased [Unknown]

NARRATIVE: CASE EVENT DATE: 202005
